FAERS Safety Report 23466221 (Version 1)
Quarter: 2024Q1

REPORT INFORMATION
  Report Type: Spontaneous
  Country: US (occurrence: None)
  Receive Date: 20240131
  Receipt Date: 20240131
  Transmission Date: 20240409
  Serious: Yes (Disabling)
  Sender: FDA-Public Use
  Company Number: None

PATIENT
  Age: 61 Year
  Sex: Female

DRUGS (4)
  1. LEVOFLOXACIN [Suspect]
     Active Substance: LEVOFLOXACIN
     Dosage: 750 MG DAILY ORAL
     Route: 048
     Dates: start: 20240119, end: 20240120
  2. ALBUTEROL HFA 90 MCG INH [Concomitant]
     Dates: start: 20240119
  3. METHYLPREDNISOLONE 4 MG DOSEPAK [Concomitant]
     Dates: start: 20240119
  4. VALACYCLOVIR 1 GM TAB [Concomitant]
     Dates: start: 20240119

REACTIONS (3)
  - Anxiety [None]
  - Thinking abnormal [None]
  - Nervous system disorder [None]

NARRATIVE: CASE EVENT DATE: 20240119
